FAERS Safety Report 21232758 (Version 1)
Quarter: 2022Q3

REPORT INFORMATION
  Report Type: Spontaneous
  Country: US (occurrence: US)
  Receive Date: 20220819
  Receipt Date: 20220819
  Transmission Date: 20221027
  Serious: Yes (Hospitalization)
  Sender: FDA-Public Use
  Company Number: US-MYLANLABS-2022M1086539

PATIENT
  Age: 54 Year
  Sex: Male

DRUGS (6)
  1. DILTIAZEM [Suspect]
     Active Substance: DILTIAZEM
     Indication: Cardiac failure acute
     Dosage: UNK (DRIP)
     Route: 065
  2. TESTOSTERONE [Concomitant]
     Active Substance: TESTOSTERONE
     Indication: Intentional product misuse
     Dosage: UNK
     Route: 030
  3. FUROSEMIDE [Concomitant]
     Active Substance: FUROSEMIDE
     Indication: Pulmonary oedema
     Dosage: 40 MILLIGRAM
     Route: 042
  4. HEPARIN [Concomitant]
     Active Substance: HEPARIN SODIUM
     Indication: Product used for unknown indication
     Dosage: UNK (DRIP)
     Route: 065
  5. TAMOXIFEN [Concomitant]
     Active Substance: TAMOXIFEN
     Indication: Product used for unknown indication
     Dosage: UNK
     Route: 065
  6. RALOXIFENE [Concomitant]
     Active Substance: RALOXIFENE
     Indication: Product used for unknown indication
     Dosage: UNK
     Route: 065

REACTIONS (2)
  - Drug ineffective for unapproved indication [Unknown]
  - Off label use [Unknown]
